FAERS Safety Report 5915096-5 (Version None)
Quarter: 2008Q4

REPORT INFORMATION
  Report Type: 
  Country: None (occurrence: None)
  Receive Date: 20081010
  Receipt Date: 20081007
  Transmission Date: 20090506
  Serious: Yes (Life-Threatening)
  Sender: FDA-Public Use
  Company Number: B0529772A

PATIENT
  Age: 31 Year
  Sex: Male

DRUGS (5)
  1. PAXIL [Suspect]
     Indication: DEPRESSION
     Dosage: 20MG PER DAY
     Route: 048
     Dates: start: 20080402
  2. MYSLEE [Suspect]
     Indication: INSOMNIA
     Route: 048
     Dates: start: 20080709
  3. RESLIN [Suspect]
     Indication: INSOMNIA
     Route: 048
     Dates: start: 20080709
  4. LENDORMIN [Concomitant]
     Indication: INSOMNIA
     Dosage: .25MG PER DAY
     Route: 048
     Dates: start: 20080402, end: 20080708
  5. DEPAS [Concomitant]
     Indication: NEUROSIS
     Dosage: .5MG PER DAY
     Route: 048
     Dates: start: 20080402, end: 20080708

REACTIONS (1)
  - ALTERED STATE OF CONSCIOUSNESS [None]
